FAERS Safety Report 4997265-4 (Version None)
Quarter: 2006Q1

REPORT INFORMATION
  Report Type: 
  Country: None (occurrence: None)
  Receive Date: 20060315
  Receipt Date: 20051116
  Transmission Date: 20060701
  Serious: Yes (Other)
  Sender: FDA-Public Use
  Company Number: 425268

PATIENT
  Age: 78 Year
  Sex: Male

DRUGS (8)
  1. BONIVA [Suspect]
     Indication: OSTEOPOROSIS
     Dosage: 150 MG 1 PER MONTH ORAL
     Route: 048
     Dates: start: 20051115
  2. MULTIVITAMIN NOS (MULTIVITAMIN NOS) [Concomitant]
  3. CALCIUM CARBONATE (CALCIUM CARBONATE) [Concomitant]
  4. VITAMIN E (ALPHA-TOCOPHEROL) [Concomitant]
  5. FLOMAX (*MORNIFLUMATE/*TAMSULOSIN HYDROCHLORIDE) [Concomitant]
  6. PROSCAR [Concomitant]
  7. LEVBID (HYOSCYAMINE) [Concomitant]
  8. EXELON [Concomitant]

REACTIONS (2)
  - CHAPPED LIPS [None]
  - MOUTH HAEMORRHAGE [None]
